FAERS Safety Report 5198033-3 (Version None)
Quarter: 2006Q4

REPORT INFORMATION
  Report Type: 
  Country: None (occurrence: None)
  Receive Date: 20061228
  Receipt Date: 20061108
  Transmission Date: 20070319
  Serious: Yes (Other)
  Sender: FDA-Public Use
  Company Number: 234114

PATIENT
  Age: 12 Year
  Sex: Male

DRUGS (1)
  1. NUTROPIN [Suspect]
     Indication: BODY HEIGHT BELOW NORMAL

REACTIONS (2)
  - LIPODYSTROPHY ACQUIRED [None]
  - MUSCLE HYPERTROPHY [None]
